FAERS Safety Report 18084384 (Version 1)
Quarter: 2020Q3

REPORT INFORMATION
  Report Type: Spontaneous
  Country: US (occurrence: US)
  Receive Date: 20200729
  Receipt Date: 20200729
  Transmission Date: 20201103
  Serious: No
  Sender: FDA-Public Use
  Company Number: US-TEVA-2020-US-1799581

PATIENT
  Age: 56 Year
  Sex: Female
  Weight: 78.02 kg

DRUGS (3)
  1. RIZATRIPTAN. [Concomitant]
     Active Substance: RIZATRIPTAN
     Indication: MIGRAINE
     Dosage: AS NEEDED
  2. AJOVY [Suspect]
     Active Substance: FREMANEZUMAB-VFRM
     Indication: MIGRAINE
     Dates: start: 201909
  3. LEVOTHYROXINE. [Concomitant]
     Active Substance: LEVOTHYROXINE
     Indication: THYROID CANCER
     Dosage: 25 MILLIGRAM DAILY;

REACTIONS (4)
  - Injection site pain [Recovering/Resolving]
  - Injection site mass [Recovering/Resolving]
  - Injection site erythema [Recovering/Resolving]
  - Product administered at inappropriate site [Unknown]

NARRATIVE: CASE EVENT DATE: 20200705
